FAERS Safety Report 16062659 (Version 2)
Quarter: 2019Q2

REPORT INFORMATION
  Report Type: Report from Study
  Country: CA (occurrence: CA)
  Receive Date: 20190312
  Receipt Date: 20190419
  Transmission Date: 20190711
  Serious: Yes (Death, Hospitalization)
  Sender: FDA-Public Use
  Company Number: CA-TAIHO ONCOLOGY  INC-EU-2019-00679

PATIENT
  Age: 75 Year
  Sex: Female
  Weight: 72 kg

DRUGS (5)
  1. MAXERAN [Concomitant]
     Active Substance: METOCLOPRAMIDE HYDROCHLORIDE
     Indication: NAUSEA
     Dosage: PRN
     Route: 048
  2. PANTOPRAZOLE [Concomitant]
     Active Substance: PANTOPRAZOLE
     Dosage: CURRENT CYCLE UNKNOWN
  3. FRAGMIN [Concomitant]
     Active Substance: DALTEPARIN SODIUM
     Route: 058
  4. LONSURF [Suspect]
     Active Substance: TIPIRACIL HYDROCHLORIDE\TRIFLURIDINE
     Indication: COLON CANCER METASTATIC
     Dosage: CYCLE 3 STARTED ON 31/JAN/2019
     Route: 048
     Dates: start: 20181205
  5. IMODIUM [Concomitant]
     Active Substance: LOPERAMIDE HYDROCHLORIDE

REACTIONS (4)
  - Neutrophil count decreased [Recovered/Resolved]
  - Death [Fatal]
  - Acute myocardial infarction [Unknown]
  - Ventricular septal defect acquired [Unknown]

NARRATIVE: CASE EVENT DATE: 20190108
